FAERS Safety Report 18362691 (Version 1)
Quarter: 2020Q4

REPORT INFORMATION
  Report Type: Spontaneous
  Country: DE (occurrence: DE)
  Receive Date: 20201009
  Receipt Date: 20201009
  Transmission Date: 20210114
  Serious: Yes (Other)
  Sender: FDA-Public Use
  Company Number: DE-AMGEN-DEUSP2020160355

PATIENT
  Age: 57 Year
  Sex: Female
  Weight: 57 kg

DRUGS (12)
  1. CEFUROXIM [CEFUROXIME] [Concomitant]
     Active Substance: CEFUROXIME
     Indication: PROPHYLAXIS
     Dosage: 500 MILLIGRAM
     Dates: start: 20120918, end: 20120922
  2. MCP [Concomitant]
     Active Substance: METOCLOPRAMIDE HYDROCHLORIDE
     Dosage: UNK
     Dates: start: 20120720
  3. SANDOCAL [CALCIUM CARBONATE] [Concomitant]
     Indication: PROPHYLAXIS
     Dosage: UNK
     Dates: start: 20120731
  4. CAPECITABINE. [Concomitant]
     Active Substance: CAPECITABINE
     Dosage: 2000 MG/M SQUARE
     Dates: start: 20120716, end: 20120729
  5. SIP [Concomitant]
     Dosage: UNK
     Dates: start: 20120731
  6. IMODIUM [Concomitant]
     Active Substance: LOPERAMIDE HYDROCHLORIDE
     Indication: PROPHYLAXIS
     Dosage: UNK
     Dates: start: 20120713
  7. PANTOPRAZOL [PANTOPRAZOLE] [Concomitant]
     Active Substance: PANTOPRAZOLE
     Dosage: UNK
     Dates: start: 20120720
  8. RAMIPRIL. [Concomitant]
     Active Substance: RAMIPRIL
     Dosage: 1 MILLIGRAM
  9. XGEVA [Suspect]
     Active Substance: DENOSUMAB
     Indication: PROPHYLAXIS
     Dosage: 120 MILLIGRAM
     Route: 058
     Dates: start: 20110204, end: 20121102
  10. CAPECITABINE. [Concomitant]
     Active Substance: CAPECITABINE
     Dosage: 1500 MG/M SQUARE
     Dates: start: 20120806, end: 20120820
  11. CAPECITABINE. [Concomitant]
     Active Substance: CAPECITABINE
     Dosage: 1500 MG/M SQUARE
     Dates: start: 20120827, end: 20120909
  12. NOVALGIN (METAMIZOLE SODIUM) [Concomitant]
     Active Substance: METAMIZOLE SODIUM

REACTIONS (2)
  - Metastases to central nervous system [Not Recovered/Not Resolved]
  - Renal failure [Recovered/Resolved]

NARRATIVE: CASE EVENT DATE: 20120724
